FAERS Safety Report 21614273 (Version 1)
Quarter: 2022Q4

REPORT INFORMATION
  Report Type: Spontaneous
  Country: US (occurrence: None)
  Receive Date: 20221117
  Receipt Date: 20221117
  Transmission Date: 20230112
  Serious: Yes (Life-Threatening, Other)
  Sender: FDA-Public Use
  Company Number: None

PATIENT
  Age: 19 Year
  Sex: Male
  Weight: 81 kg

DRUGS (4)
  1. LEVETIRACETAM [Suspect]
     Active Substance: LEVETIRACETAM
     Indication: Epilepsy
     Dosage: OTHER QUANTITY : 1 TABLET(S);?FREQUENCY : TWICE A DAY;?
     Route: 048
  2. Levetiracetam 1000mg BID [Concomitant]
  3. Levetiracetam 500mg BID [Concomitant]
  4. Ethosuximide 250mg 2 cap BID [Concomitant]

REACTIONS (10)
  - Product substitution issue [None]
  - Feeling abnormal [None]
  - Panic attack [None]
  - Nervousness [None]
  - Anticonvulsant drug level below therapeutic [None]
  - Therapeutic response changed [None]
  - Manufacturing materials issue [None]
  - Product quality issue [None]
  - Hyperhidrosis [None]
  - Distractibility [None]

NARRATIVE: CASE EVENT DATE: 20221026
